FAERS Safety Report 23225737 (Version 1)
Quarter: 2023Q4

REPORT INFORMATION
  Report Type: Spontaneous
  Country: US (occurrence: US)
  Receive Date: 20231124
  Receipt Date: 20231124
  Transmission Date: 20240110
  Serious: No
  Sender: FDA-Public Use
  Company Number: US-SA-SAC20231117001153

PATIENT
  Age: 6 Year
  Sex: Female

DRUGS (1)
  1. DUPIXENT [Suspect]
     Active Substance: DUPILUMAB
     Dosage: 300 MG, Q4W
     Route: 058

REACTIONS (5)
  - Dry skin [Unknown]
  - Fatigue [Unknown]
  - Pruritus [Unknown]
  - Skin exfoliation [Unknown]
  - Oral herpes [Unknown]

NARRATIVE: CASE EVENT DATE: 20231101
